FAERS Safety Report 12610095 (Version 1)
Quarter: 2016Q3

REPORT INFORMATION
  Report Type: Spontaneous
  Country: US (occurrence: None)
  Receive Date: 20160729
  Receipt Date: 20160729
  Transmission Date: 20161109
  Serious: Yes (Other)
  Sender: FDA-Public Use
  Company Number: None

PATIENT
  Age: 23 Year
  Sex: Female
  Weight: 74.39 kg

DRUGS (1)
  1. NEXPLANON [Suspect]
     Active Substance: ETONOGESTREL
     Indication: CONTRACEPTION
     Dosage: 68 MG EVERY 3 YEARS SUBDERMAL
     Route: 059
     Dates: start: 20160629, end: 20160727

REACTIONS (3)
  - Implant site abscess [None]
  - Product contamination [None]
  - Implant site infection [None]

NARRATIVE: CASE EVENT DATE: 20160629
